FAERS Safety Report 16053875 (Version 1)
Quarter: 2019Q1

REPORT INFORMATION
  Report Type: Spontaneous
  Country: US (occurrence: US)
  Receive Date: 20190308
  Receipt Date: 20190308
  Transmission Date: 20190418
  Serious: Yes (Other)
  Sender: FDA-Public Use
  Company Number: US-NAPPMUNDI-USA-2019-0146319

PATIENT
  Sex: Female

DRUGS (4)
  1. MELOXICAM. [Suspect]
     Active Substance: MELOXICAM
     Indication: PAIN
     Route: 065
  2. TRAMADOL. [Suspect]
     Active Substance: TRAMADOL
     Indication: PAIN
     Route: 065
  3. OXYCODONE HYDROCHLORIDE (SIMILAR TO NDA 22-272) [Suspect]
     Active Substance: OXYCODONE HYDROCHLORIDE
     Indication: PAIN
     Route: 048
  4. DICLOFENAC [Suspect]
     Active Substance: DICLOFENAC
     Indication: PAIN
     Route: 065

REACTIONS (13)
  - Foot fracture [Recovered/Resolved]
  - Osteonecrosis [Recovered/Resolved]
  - Pain [Unknown]
  - Nerve injury [Not Recovered/Not Resolved]
  - Overdose [Unknown]
  - Foot operation [Recovered/Resolved]
  - Pyrexia [Recovered/Resolved]
  - Leg amputation [Not Recovered/Not Resolved]
  - Drug abuse [Unknown]
  - Staphylococcal infection [Recovered/Resolved]
  - Euphoric mood [Unknown]
  - Drug dependence [Unknown]
  - Phantom pain [Not Recovered/Not Resolved]

NARRATIVE: CASE EVENT DATE: 2016
